FAERS Safety Report 18048463 (Version 1)
Quarter: 2020Q3

REPORT INFORMATION
  Report Type: Report from Study
  Country: US (occurrence: US)
  Receive Date: 20200721
  Receipt Date: 20200721
  Transmission Date: 20201103
  Serious: Yes (Life-Threatening, Hospitalization, Other)
  Sender: FDA-Public Use
  Company Number: US-PFIZER INC-2020211752

PATIENT
  Age: 54 Year
  Sex: Male

DRUGS (1)
  1. SUTENT [Suspect]
     Active Substance: SUNITINIB MALATE
     Indication: RENAL CELL CARCINOMA
     Dosage: 50 MG, CYCLIC (DAILY, 4 WEEKS ON 2 WEEKS OFF)
     Route: 048
     Dates: start: 20200515, end: 202006

REACTIONS (20)
  - Nasopharyngitis [Unknown]
  - Dry skin [Unknown]
  - Lacrimation increased [Unknown]
  - Dysphagia [Unknown]
  - Weight decreased [Unknown]
  - Dehydration [Unknown]
  - Nasal dryness [Unknown]
  - Peripheral swelling [Unknown]
  - Condition aggravated [Unknown]
  - Taste disorder [Unknown]
  - Dyspnoea [Unknown]
  - Stomatitis [Unknown]
  - Nausea [Unknown]
  - Dry throat [Unknown]
  - Cardiac arrest [Unknown]
  - Asthenia [Unknown]
  - Fatigue [Unknown]
  - Sternal fracture [Unknown]
  - Neoplasm progression [Unknown]
  - Constipation [Unknown]

NARRATIVE: CASE EVENT DATE: 2020
